FAERS Safety Report 14150822 (Version 1)
Quarter: 2017Q4

REPORT INFORMATION
  Report Type: Spontaneous
  Country: US (occurrence: US)
  Receive Date: 20171102
  Receipt Date: 20171102
  Transmission Date: 20180321
  Serious: No
  Sender: FDA-Public Use
  Company Number: US-LUPIN PHARMACEUTICALS INC.-2017-05313

PATIENT
  Age: 11 Month
  Sex: Male

DRUGS (1)
  1. CALCIUM ACETATE CAPSULES 667MG [Suspect]
     Active Substance: CALCIUM ACETATE
     Indication: PRODUCT USED FOR UNKNOWN INDICATION
     Dosage: UNK, SINGLE
     Route: 048

REACTIONS (2)
  - Breath odour [Recovering/Resolving]
  - Accidental exposure to product by child [Unknown]
